FAERS Safety Report 11509320 (Version 2)
Quarter: 2015Q3

REPORT INFORMATION
  Report Type: Spontaneous
  Country: FR (occurrence: FR)
  Receive Date: 20150915
  Receipt Date: 20150928
  Transmission Date: 20151125
  Serious: Yes (Hospitalization)
  Sender: FDA-Public Use
  Company Number: PHHY2015FR109369

PATIENT
  Age: 27 Year
  Sex: Female

DRUGS (12)
  1. ATRACURIUM HOSPIRA [Suspect]
     Active Substance: ATRACURIUM
     Indication: PRODUCT USED FOR UNKNOWN INDICATION
     Route: 065
     Dates: start: 20150723, end: 20150723
  2. DEXAMETHASONE MERCK//DEXAMETHASONE ACETATE [Suspect]
     Active Substance: DEXAMETHASONE
     Indication: PRODUCT USED FOR UNKNOWN INDICATION
     Route: 065
     Dates: start: 20150723, end: 20150723
  3. KETAMINE PANPHARMA [Suspect]
     Active Substance: KETAMINE
     Indication: PRODUCT USED FOR UNKNOWN INDICATION
     Dosage: UNK
     Route: 065
     Dates: start: 20150723, end: 20150723
  4. ACUPAN [Suspect]
     Active Substance: NEFOPAM HYDROCHLORIDE
     Indication: PRODUCT USED FOR UNKNOWN INDICATION
     Route: 065
     Dates: start: 20150723, end: 20150723
  5. SEVOFLURANE. [Suspect]
     Active Substance: SEVOFLURANE
     Indication: PRODUCT USED FOR UNKNOWN INDICATION
     Route: 065
     Dates: start: 20150723, end: 20150723
  6. DROLEPTAN [Suspect]
     Active Substance: DROPERIDOL
     Indication: PRODUCT USED FOR UNKNOWN INDICATION
     Route: 065
     Dates: start: 20150723, end: 20150723
  7. NEOSTIGMINE METILSULFATE [Suspect]
     Active Substance: NEOSTIGMINE METHYLSULFATE
     Indication: PRODUCT USED FOR UNKNOWN INDICATION
     Route: 065
     Dates: start: 20150723, end: 20150723
  8. AMOXICILLIN CLAVULANIC ACID SANDOZ [Suspect]
     Active Substance: AMOXICILLIN\CLAVULANIC ACID
     Indication: PROPHYLAXIS
     Route: 065
     Dates: start: 20150723, end: 20150723
  9. SULFENTANYL [Suspect]
     Active Substance: SUFENTANIL
     Indication: PRODUCT USED FOR UNKNOWN INDICATION
     Route: 065
     Dates: start: 20150723, end: 20150723
  10. CONTRAMAL [Suspect]
     Active Substance: TRAMADOL HYDROCHLORIDE
     Indication: PRODUCT USED FOR UNKNOWN INDICATION
     Route: 065
     Dates: start: 20150723, end: 20150723
  11. ATROPINE AGUETTANT [Suspect]
     Active Substance: ATROPINE
     Indication: PRODUCT USED FOR UNKNOWN INDICATION
     Route: 065
     Dates: start: 20150723, end: 20150723
  12. PROPOFOL. [Suspect]
     Active Substance: PROPOFOL
     Indication: PRODUCT USED FOR UNKNOWN INDICATION
     Route: 065
     Dates: start: 20150723, end: 20150723

REACTIONS (2)
  - Postoperative renal failure [None]
  - Acute kidney injury [Recovering/Resolving]

NARRATIVE: CASE EVENT DATE: 20150724
